FAERS Safety Report 19461221 (Version 1)
Quarter: 2021Q2

REPORT INFORMATION
  Report Type: Spontaneous
  Country: US (occurrence: US)
  Receive Date: 20210625
  Receipt Date: 20210625
  Transmission Date: 20210717
  Serious: No
  Sender: FDA-Public Use
  Company Number: US-ASTRAZENECA-2021A532701

PATIENT
  Age: 721 Month
  Sex: Female
  Weight: 113.4 kg

DRUGS (1)
  1. SEROQUEL [Suspect]
     Active Substance: QUETIAPINE FUMARATE
     Indication: BIPOLAR DISORDER
     Route: 048
     Dates: start: 2001

REACTIONS (3)
  - Obesity [Unknown]
  - Aortic stenosis [Unknown]
  - Cardiac stress test abnormal [Unknown]

NARRATIVE: CASE EVENT DATE: 202101
